FAERS Safety Report 5086069-2 (Version None)
Quarter: 2006Q3

REPORT INFORMATION
  Report Type: 
  Country: None (occurrence: None)
  Receive Date: 20060818
  Receipt Date: 20060804
  Transmission Date: 20061208
  Serious: No
  Sender: FDA-Public Use
  Company Number: AND_0389_2006

PATIENT
  Age: 82 Year
  Sex: Female

DRUGS (2)
  1. METFORMIN HCL [Suspect]
     Indication: DIABETES MELLITUS NON-INSULIN-DEPENDENT
     Dosage: 1 G BID PO
     Route: 048
  2. FAMOTIDINE [Concomitant]

REACTIONS (3)
  - COGNITIVE DISORDER [None]
  - SUBACUTE COMBINED CORD DEGENERATION [None]
  - VITAMIN B12 DEFICIENCY [None]
